FAERS Safety Report 23614718 (Version 1)
Quarter: 2024Q1

REPORT INFORMATION
  Report Type: Spontaneous
  Country: US (occurrence: US)
  Receive Date: 20240311
  Receipt Date: 20240311
  Transmission Date: 20240410
  Serious: Yes (Disabling, Other)
  Sender: FDA-Public Use
  Company Number: US-NOVOPROD-1185683

PATIENT
  Sex: Female

DRUGS (1)
  1. OZEMPIC [Suspect]
     Active Substance: SEMAGLUTIDE
     Indication: Renal impairment
     Dosage: UNK
     Route: 058

REACTIONS (5)
  - Eye operation [Unknown]
  - Road traffic accident [Unknown]
  - Nerve injury [Unknown]
  - Hemiparesis [Unknown]
  - Off label use [Unknown]
